FAERS Safety Report 7968179-2 (Version None)
Quarter: 2011Q4

REPORT INFORMATION
  Report Type: 
  Country: None (occurrence: None)
  Receive Date: 20111209
  Receipt Date: 20111205
  Transmission Date: 20120403
  Serious: Yes (Hospitalization)
  Sender: FDA-Public Use
  Company Number: PHHO2010AU00748

PATIENT
  Sex: Male
  Weight: 59 kg

DRUGS (1)
  1. AFINITOR [Suspect]
     Indication: METASTATIC GASTRIC CANCER
     Dosage: 10 MG, QD
     Route: 048
     Dates: start: 20091202, end: 20100129

REACTIONS (2)
  - IRON DEFICIENCY ANAEMIA [None]
  - LETHARGY [None]
